FAERS Safety Report 5734634-9 (Version None)
Quarter: 2008Q2

REPORT INFORMATION
  Report Type: 
  Country: None (occurrence: None)
  Receive Date: 20080512
  Receipt Date: 20080501
  Transmission Date: 20081010
  Serious: Yes (Hospitalization)
  Sender: FDA-Public Use
  Company Number: PHFR2008IE01173

PATIENT
  Age: 60 Year
  Sex: Female
  Weight: 66 kg

DRUGS (3)
  1. CLOZARIL [Suspect]
     Indication: SCHIZOPHRENIA
     Route: 048
     Dates: start: 20070924
  2. MIRTAZAPINE [Concomitant]
     Indication: DEPRESSION
     Dosage: 30MG DAILY
     Route: 048
     Dates: start: 20070701
  3. OLANZAPINE [Concomitant]
     Dosage: 2.5MG DAILY
     Route: 048
     Dates: start: 20070701

REACTIONS (6)
  - CONFUSIONAL STATE [None]
  - DELIRIUM [None]
  - GAIT DISTURBANCE [None]
  - LOWER RESPIRATORY TRACT INFECTION [None]
  - MALAISE [None]
  - NEUROLEPTIC MALIGNANT SYNDROME [None]
